FAERS Safety Report 4491886-3 (Version None)
Quarter: 2004Q4

REPORT INFORMATION
  Report Type: 
  Country: None (occurrence: None)
  Receive Date: 20041029
  Receipt Date: 20041029
  Transmission Date: 20050328
  Serious: Yes (Life-Threatening, Hospitalization)
  Sender: FDA-Public Use
  Company Number: None

PATIENT
  Age: 20 Year
  Sex: Male
  Weight: 73.4827 kg

DRUGS (1)
  1. LEXAPRO [Suspect]
     Indication: DEPRESSION
     Dosage: 10 MG PER DAY ORAL
     Route: 048
     Dates: start: 20040918, end: 20041025

REACTIONS (3)
  - FEELING ABNORMAL [None]
  - MULTIPLE DRUG OVERDOSE [None]
  - SUICIDAL IDEATION [None]
